FAERS Safety Report 6184302-7 (Version None)
Quarter: 2009Q2

REPORT INFORMATION
  Report Type: 
  Country: None (occurrence: None)
  Receive Date: 20090508
  Receipt Date: 20090430
  Transmission Date: 20091009
  Serious: Yes (Disabling)
  Sender: FDA-Public Use
  Company Number: CA-AVENTIS-200914511GDDC

PATIENT
  Age: 64 Year
  Sex: Female

DRUGS (6)
  1. LANTUS [Suspect]
     Route: 058
     Dates: start: 20080101
  2. LANTUS [Suspect]
     Route: 058
     Dates: start: 20080101
  3. AUTOPEN INSULIN INJECTION PEN [Suspect]
  4. NOVORAPID [Suspect]
     Dosage: DOSE: DEPENDING ON BLOOD SUGAR
     Route: 058
     Dates: start: 20080101
  5. ASPIRIN [Concomitant]
     Route: 048
  6. SYNTHROID [Concomitant]
     Route: 048

REACTIONS (2)
  - MYALGIA [None]
  - OEDEMA PERIPHERAL [None]
